FAERS Safety Report 20911163 (Version 2)
Quarter: 2022Q2

REPORT INFORMATION
  Report Type: Spontaneous
  Country: US (occurrence: US)
  Receive Date: 20220603
  Receipt Date: 20220610
  Transmission Date: 20220721
  Serious: No
  Sender: FDA-Public Use
  Company Number: US-PFIZER INC-202200785705

PATIENT
  Age: 88 Year
  Sex: Female
  Weight: 51.701 kg

DRUGS (1)
  1. ZOSYN [Suspect]
     Active Substance: PIPERACILLIN SODIUM\TAZOBACTAM SODIUM
     Indication: Pseudomonas aeruginosa meningitis
     Dosage: 13.5 G (13.5 GM ZOSYN IN 240 MLS)

REACTIONS (2)
  - Hypertension [Unknown]
  - Off label use [Unknown]
